FAERS Safety Report 10272819 (Version 3)
Quarter: 2014Q3

REPORT INFORMATION
  Report Type: Spontaneous
  Country: US (occurrence: None)
  Receive Date: 20140630
  Receipt Date: 20140813
  Transmission Date: 20150326
  Serious: Yes (Hospitalization)
  Sender: FDA-Public Use
  Company Number: UNT-2014-002617

PATIENT
  Age: 39 Year
  Sex: Male
  Weight: 88.9 kg

DRUGS (3)
  1. LETAIRIS [Concomitant]
     Active Substance: AMBRISENTAN
  2. REMODULIN [Suspect]
     Active Substance: TREPROSTINIL
     Indication: PULMONARY ARTERIAL HYPERTENSION
     Dosage: 0.087 UG/KG, CONTINUING, SUBCUTANENOUS
     Route: 058
     Dates: start: 20130327
  3. WARFARIN (WARFARIN) [Concomitant]
     Active Substance: WARFARIN

REACTIONS (2)
  - Oedema peripheral [None]
  - Atrial fibrillation [None]

NARRATIVE: CASE EVENT DATE: 20140616
